FAERS Safety Report 10358915 (Version 4)
Quarter: 2015Q1

REPORT INFORMATION
  Report Type: Report from Study
  Country: RS (occurrence: RS)
  Receive Date: 20140804
  Receipt Date: 20150213
  Transmission Date: 20150720
  Serious: Yes (Hospitalization)
  Sender: FDA-Public Use
  Company Number: RS-BIOGENIDEC-2014BI076494

PATIENT
  Age: 41 Year
  Sex: Female
  Weight: 76 kg

DRUGS (8)
  1. FOLIC ACID. [Concomitant]
     Active Substance: FOLIC ACID
     Indication: IRON DEFICIENCY ANAEMIA
     Dates: start: 20140702
  2. GENTAMYCIN UNG [Concomitant]
     Indication: ONYCHOMYCOSIS
     Dates: start: 20140415
  3. TOT HEMA [Concomitant]
     Indication: IRON DEFICIENCY ANAEMIA
     Dates: start: 20140702
  4. AVONEX [Suspect]
     Active Substance: INTERFERON BETA-1A
     Indication: MULTIPLE SCLEROSIS
     Route: 030
     Dates: start: 20140218
  5. LAMOTRIGINE. [Concomitant]
     Active Substance: LAMOTRIGINE
  6. TERBINAFINE CREAM [Concomitant]
     Indication: ONYCHOMYCOSIS
     Dates: start: 20140624
  7. MOMETASONUM CREAM [Concomitant]
     Indication: ONYCHOMYCOSIS
     Dates: start: 20140415
  8. BLINDED THERAPY [Concomitant]
     Active Substance: INVESTIGATIONAL PRODUCT
     Route: 042
     Dates: start: 20140218

REACTIONS (1)
  - Cystitis [Recovered/Resolved]

NARRATIVE: CASE EVENT DATE: 20140801
